FAERS Safety Report 9431504 (Version 1)
Quarter: 2013Q3

REPORT INFORMATION
  Report Type: Spontaneous
  Country: ES (occurrence: ES)
  Receive Date: 20130730
  Receipt Date: 20130730
  Transmission Date: 20140515
  Serious: Yes (Other)
  Sender: FDA-Public Use
  Company Number: ES-MYLANLABS-2013S1016302

PATIENT
  Age: 41 Year
  Sex: Female

DRUGS (8)
  1. DOSTINEX [Suspect]
     Indication: LACTATION INHIBITION THERAPY
     Dosage: SINGLE 0.25MG DOSE
     Route: 065
  2. DOSTINEX [Suspect]
     Indication: LACTATION INHIBITION THERAPY
     Dosage: TWO 0.25MG DOSES 2 WEEKS LATER
     Route: 065
  3. RISPERIDONE [Suspect]
     Indication: OVERDOSE
     Route: 065
  4. RISPERIDONE [Suspect]
     Indication: MENTAL DISORDER
     Route: 065
  5. RISPERIDONE [Suspect]
     Indication: OVERDOSE
     Dosage: 1 MG/DAY
     Route: 065
  6. RISPERIDONE [Suspect]
     Indication: MENTAL DISORDER
     Dosage: 1 MG/DAY
     Route: 065
  7. RISPERIDONE [Suspect]
     Indication: OVERDOSE
     Dosage: 3 MG/DAY
     Route: 065
  8. RISPERIDONE [Suspect]
     Indication: MENTAL DISORDER
     Dosage: 3 MG/DAY
     Route: 065

REACTIONS (4)
  - Schizoaffective disorder [Recovering/Resolving]
  - Suicide attempt [Recovering/Resolving]
  - Overdose [Recovering/Resolving]
  - Postpartum disorder [Recovering/Resolving]
